FAERS Safety Report 4627175-3 (Version None)
Quarter: 2005Q1

REPORT INFORMATION
  Report Type: 
  Country: None (occurrence: None)
  Receive Date: 20050331
  Receipt Date: 20050318
  Transmission Date: 20050727
  Serious: Yes (Hospitalization)
  Sender: FDA-Public Use
  Company Number: 2005SP000076

PATIENT
  Age: 86 Year
  Sex: Female
  Weight: 57.6068 kg

DRUGS (9)
  1. XOPENEX [Suspect]
     Indication: CHRONIC OBSTRUCTIVE PULMONARY DISEASE
     Dosage: 1.25 MG; AS NEEDED INHALATION
     Route: 055
     Dates: start: 20050222, end: 20050227
  2. PROTONIX [Concomitant]
  3. LEVOFLOXACIN [Concomitant]
  4. METHYLPREDNISOLONE [Concomitant]
  5. AMBIEN [Concomitant]
  6. TYLENOL (CAPLET) [Concomitant]
  7. PREDNISONE [Concomitant]
  8. XANAX [Concomitant]
  9. EFFEXOR [Concomitant]

REACTIONS (3)
  - ASTHENIA [None]
  - CHRONIC OBSTRUCTIVE AIRWAYS DISEASE EXACERBATED [None]
  - FAILURE TO THRIVE [None]
